FAERS Safety Report 24799315 (Version 1)
Quarter: 2025Q1

REPORT INFORMATION
  Report Type: Report from Study
  Country: IN (occurrence: IN)
  Receive Date: 20250102
  Receipt Date: 20250102
  Transmission Date: 20250408
  Serious: Yes (Death)
  Sender: ROCHE
  Company Number: IN-ROCHE-10000072718

PATIENT
  Age: 74 Year
  Sex: Male

DRUGS (1)
  1. TECENTRIQ [Suspect]
     Active Substance: ATEZOLIZUMAB
     Indication: Hepatocellular carcinoma
     Route: 042
     Dates: start: 20240811

REACTIONS (6)
  - Asthenia [Unknown]
  - Oral infection [Unknown]
  - Delusion [Unknown]
  - Stress [Unknown]
  - Mental disorder [Unknown]
  - Death [Fatal]
